FAERS Safety Report 5941411-2 (Version None)
Quarter: 2008Q4

REPORT INFORMATION
  Report Type: 
  Country: None (occurrence: None)
  Receive Date: 20081031
  Receipt Date: 20081023
  Transmission Date: 20090506
  Serious: Yes (Disabling)
  Sender: FDA-Public Use
  Company Number: OSCN-NO-01810S-0550

PATIENT
  Age: 68 Year
  Sex: Female

DRUGS (12)
  1. OMNISCAN [Suspect]
     Indication: BLADDER CANCER
     Dosage: LESS THAN 10 ML, SINGLE DOSE, I.V.
     Route: 042
     Dates: start: 20021228, end: 20021228
  2. OMNISCAN [Suspect]
     Indication: RENAL CANCER STAGE I
     Dosage: LESS THAN 10 ML, SINGLE DOSE, I.V.
     Route: 042
     Dates: start: 20021228, end: 20021228
  3. OMNISCAN [Suspect]
     Indication: BLADDER CANCER
     Dosage: LESS THAN 10 ML, SINGLE DOSE, I.V.
     Route: 042
     Dates: start: 20060527, end: 20060527
  4. OMNISCAN [Suspect]
     Indication: RENAL CANCER STAGE I
     Dosage: LESS THAN 10 ML, SINGLE DOSE, I.V.
     Route: 042
     Dates: start: 20060527, end: 20060527
  5. EPOETIN ALFA (ESPO) [Concomitant]
  6. WARFARIN SODIUM [Concomitant]
  7. DIGOXIN [Concomitant]
  8. FERROUS CITRATE [Concomitant]
  9. GADOLINIUM UNSPECIFIED [Concomitant]
  10. GADOLINIUM UNSPECIFIED [Concomitant]
  11. GADOPENTETATE DIMEGLUMINE (MAGNEVIST) [Concomitant]
  12. CLOSTAZOL (PLETAAL) [Concomitant]

REACTIONS (3)
  - HAEMODIALYSIS [None]
  - NEPHROGENIC SYSTEMIC FIBROSIS [None]
  - TALIPES [None]
